FAERS Safety Report 10972111 (Version 3)
Quarter: 2015Q4

REPORT INFORMATION
  Report Type: Spontaneous
  Country: JP (occurrence: JP)
  Receive Date: 20150331
  Receipt Date: 20151029
  Transmission Date: 20160304
  Serious: Yes (Disabling)
  Sender: FDA-Public Use
  Company Number: JP-MALLINCKRODT-T201501841

PATIENT
  Age: 80 Year
  Sex: Female
  Weight: 56 kg

DRUGS (15)
  1. MORPHINE HYDROCHLORIDE [Concomitant]
     Active Substance: MORPHINE HYDROCHLORIDE
     Dosage: 20 MG, PRN
     Route: 048
     Dates: start: 20140630, end: 20140701
  2. LANDSEN [Concomitant]
     Active Substance: CLONAZEPAM
     Dosage: 1 MG
     Route: 048
     Dates: start: 20140609, end: 20140701
  3. LIPACREON [Concomitant]
     Active Substance: PANCRELIPASE
     Dosage: 1800 MG
     Route: 048
     Dates: start: 20131031, end: 20140701
  4. HALCION [Concomitant]
     Active Substance: TRIAZOLAM
     Dosage: 0.25 MG
     Route: 048
     Dates: start: 20140611, end: 20140904
  5. LASIX [Concomitant]
     Active Substance: FUROSEMIDE
     Indication: PANCREATIC CARCINOMA
     Dosage: 20 MG
     Route: 048
     Dates: start: 20140613, end: 20140701
  6. LAC-B [Concomitant]
     Active Substance: BIFIDOBACTERIUM SPP.
     Dosage: 6000 MG
     Route: 048
     Dates: start: 20140630, end: 20140701
  7. NEXIUM [Concomitant]
     Active Substance: ESOMEPRAZOLE MAGNESIUM
     Dosage: 20 MG
     Route: 048
     Dates: start: 20131219, end: 20140701
  8. OXYFAST [Concomitant]
     Active Substance: OXYCODONE
     Dosage: 2 MG, PRN
     Route: 051
     Dates: start: 20140629, end: 20140629
  9. SOLANAX [Concomitant]
     Active Substance: ALPRAZOLAM
     Dosage: 1.2 MG
     Route: 048
     Dates: start: 20140611, end: 20140701
  10. LYRICA [Concomitant]
     Active Substance: PREGABALIN
     Dosage: 50 MG
     Route: 048
     Dates: start: 20140623, end: 20140701
  11. EBRANTIL [Concomitant]
     Active Substance: URAPIDIL
     Dosage: 30 MG
     Route: 048
     Dates: start: 20131031, end: 20140701
  12. FOIPAN [Concomitant]
     Active Substance: CAMOSTAT MESYLATE
     Indication: PANCREATIC CARCINOMA
     Dosage: 600 MG
     Route: 048
     Dates: start: 20131031, end: 20140701
  13. METHADONE [Suspect]
     Active Substance: METHADONE HYDROCHLORIDE
     Indication: CANCER PAIN
     Dosage: 5 MG (15 MG DAILY DOSE)
     Route: 048
     Dates: start: 20140630, end: 20140701
  14. EQUA [Concomitant]
     Active Substance: VILDAGLIPTIN
     Dosage: 50 MG
     Route: 048
     Dates: start: 20131031, end: 20140701
  15. GASMOTIN [Concomitant]
     Active Substance: MOSAPRIDE CITRATE
     Dosage: 15 MG
     Route: 048
     Dates: start: 20131031, end: 20140701

REACTIONS (1)
  - Femoral neck fracture [Not Recovered/Not Resolved]

NARRATIVE: CASE EVENT DATE: 20140701
